FAERS Safety Report 11464408 (Version 1)
Quarter: 2015Q3

REPORT INFORMATION
  Report Type: Spontaneous
  Country: US (occurrence: US)
  Receive Date: 20150831
  Receipt Date: 20150831
  Transmission Date: 20151125
  Serious: Yes (Other)
  Sender: FDA-Public Use
  Company Number: US-ELI_LILLY_AND_COMPANY-US201107000317

PATIENT
  Sex: Female

DRUGS (6)
  1. LYRICA [Concomitant]
     Active Substance: PREGABALIN
  2. NEURONTIN                               /USA/ [Concomitant]
     Indication: NEURALGIA
     Dosage: 300 MG, UNK
     Route: 048
     Dates: start: 2009
  3. CYMBALTA [Suspect]
     Active Substance: DULOXETINE HYDROCHLORIDE
     Dosage: UNK, UNKNOWN
  4. NORTRIPTYLINE [Concomitant]
     Active Substance: NORTRIPTYLINE
     Dosage: UNK, UNKNOWN
  5. NEURONTIN                               /USA/ [Concomitant]
     Dosage: 300 MG, EVERY 4 HRS
  6. NORTRIPTYLINE [Concomitant]
     Active Substance: NORTRIPTYLINE
     Dosage: UNK, UNKNOWN

REACTIONS (3)
  - Drug ineffective [Unknown]
  - Hypertension [Unknown]
  - Oedema [Unknown]
